FAERS Safety Report 5940898-9 (Version None)
Quarter: 2008Q4

REPORT INFORMATION
  Report Type: 
  Country: None (occurrence: None)
  Receive Date: 20081104
  Receipt Date: 20081022
  Transmission Date: 20090506
  Serious: Yes (Other)
  Sender: FDA-Public Use
  Company Number: CO-ELI_LILLY_AND_COMPANY-CO200810005756

PATIENT
  Age: 58 Year
  Sex: Female

DRUGS (4)
  1. BYETTA [Suspect]
     Indication: TYPE 2 DIABETES MELLITUS
     Dosage: 5 UG, DAILY (1/D)
     Dates: start: 20081010
  2. ISOPTIN [Concomitant]
     Dosage: UNK, UNKNOWN
     Route: 065
  3. LIPITOR [Concomitant]
     Dosage: UNK, UNKNOWN
     Route: 065
  4. ACETYLSALICYLIC ACID SRT [Concomitant]
     Dosage: UNK, UNKNOWN
     Route: 065

REACTIONS (3)
  - ANAPHYLACTIC REACTION [None]
  - APPLICATION SITE HYPERSENSITIVITY [None]
  - HYPOTENSION [None]
